FAERS Safety Report 16374587 (Version 3)
Quarter: 2019Q2

REPORT INFORMATION
  Report Type: Spontaneous
  Country: JP (occurrence: JP)
  Receive Date: 20190530
  Receipt Date: 20190617
  Transmission Date: 20190711
  Serious: Yes (Life-Threatening, Hospitalization, Other)
  Sender: FDA-Public Use
  Company Number: JP-009507513-1905JPN011934

PATIENT
  Age: 63 Year
  Sex: Male
  Weight: 43.9 kg

DRUGS (13)
  1. FLUOROURACIL SODIUM [Concomitant]
     Active Substance: FLUOROURACIL SODIUM
     Dosage: UNK
     Dates: start: 20180830, end: 20180904
  2. FAMOTIDINE. [Concomitant]
     Active Substance: FAMOTIDINE
     Dosage: UNK
     Dates: start: 20180905, end: 20180911
  3. CISPLATIN. [Suspect]
     Active Substance: CISPLATIN
     Indication: OROPHARYNGEAL CANCER
     Dosage: 110 MILLIGRAM, EVERY DAY
     Route: 041
     Dates: start: 20180830, end: 20180830
  4. MAGMITT [Concomitant]
     Active Substance: MAGNESIUM OXIDE
     Dosage: UNK
     Dates: start: 20180831, end: 20180907
  5. EMEND [Suspect]
     Active Substance: APREPITANT
     Dosage: 80 MILLIGRAM, EVERY DAY
     Route: 048
     Dates: start: 20180901, end: 20180901
  6. ERBITUX [Concomitant]
     Active Substance: CETUXIMAB
     Dosage: UNK
     Dates: start: 20180801, end: 20180927
  7. ERBITUX [Concomitant]
     Active Substance: CETUXIMAB
     Dosage: UNK
  8. CALONAL [Concomitant]
     Active Substance: ACETAMINOPHEN
     Dosage: UNK
     Dates: start: 20180823, end: 20180823
  9. OPDIVO [Suspect]
     Active Substance: NIVOLUMAB
     Indication: HEAD AND NECK CANCER
     Dosage: 160 MG
     Route: 041
     Dates: start: 20180216, end: 20180406
  10. GRANISETRON HYDROCHLORIDE. [Concomitant]
     Active Substance: GRANISETRON HYDROCHLORIDE
     Dosage: UNK
     Dates: start: 20180830, end: 20180830
  11. OLOPATADINE HYDROCHLORIDE. [Concomitant]
     Active Substance: OLOPATADINE HYDROCHLORIDE
     Dosage: UNK
     Dates: start: 20180808, end: 20181029
  12. EMEND [Suspect]
     Active Substance: APREPITANT
     Indication: PROPHYLAXIS OF NAUSEA AND VOMITING
     Dosage: 125 MILLIGRAM, EVERY DAY
     Route: 048
     Dates: start: 20180831, end: 20180831
  13. SUCRALFATE. [Concomitant]
     Active Substance: SUCRALFATE
     Dosage: ORAL DRUG
     Route: 048

REACTIONS (1)
  - Adrenal insufficiency [Not Recovered/Not Resolved]

NARRATIVE: CASE EVENT DATE: 20181002
